FAERS Safety Report 17647597 (Version 1)
Quarter: 2020Q2

REPORT INFORMATION
  Report Type: Spontaneous
  Country: US (occurrence: US)
  Receive Date: 20200408
  Receipt Date: 20200408
  Transmission Date: 20200713
  Serious: No
  Sender: FDA-Public Use
  Company Number: US-VERTEX PHARMACEUTICALS-2019-013198

PATIENT
  Age: 49 Year
  Sex: Female

DRUGS (1)
  1. TRIKAFTA [Suspect]
     Active Substance: ELEXACAFTOR\IVACAFTOR\TEZACAFTOR
     Indication: CYSTIC FIBROSIS
     Dosage: UNK, BID 2 TABS IN MORNING, 1 TABLET IN NIGHT
     Route: 048
     Dates: start: 20191114

REACTIONS (6)
  - Paraesthesia [Unknown]
  - Cough [Unknown]
  - Headache [Recovered/Resolved]
  - Sputum increased [Recovered/Resolved]
  - Abdominal pain upper [Recovered/Resolved]
  - Peripheral coldness [Unknown]

NARRATIVE: CASE EVENT DATE: 201911
